FAERS Safety Report 10112396 (Version 2)
Quarter: 2014Q2

REPORT INFORMATION
  Report Type: Report from Study
  Country: US (occurrence: US)
  Receive Date: 20140425
  Receipt Date: 20140425
  Transmission Date: 20141212
  Serious: Yes (Other)
  Sender: FDA-Public Use
  Company Number: US-EXELIXIS-XL18413003099

PATIENT
  Age: 69 Year
  Sex: 0

DRUGS (2)
  1. XL184 [Suspect]
     Indication: SOFT TISSUE NEOPLASM
     Dosage: 60 MG, QD
     Route: 048
     Dates: start: 20130225, end: 20130421
  2. XL184 [Suspect]
     Dosage: 40 MG, QD

REACTIONS (2)
  - Thyroid disorder [Recovered/Resolved]
  - Neutrophil count decreased [Unknown]
